FAERS Safety Report 8032411-X (Version None)
Quarter: 2012Q1

REPORT INFORMATION
  Report Type: 
  Country: None (occurrence: None)
  Receive Date: 20120105
  Receipt Date: 20111223
  Transmission Date: 20120608
  Serious: Yes (Hospitalization)
  Sender: FDA-Public Use
  Company Number: 1000021868

PATIENT
  Age: 51 Year
  Sex: Male

DRUGS (5)
  1. MILNACIPRAN (MILNACIPRAN HYDROCHLORIDE) (50MILLIGRAM, CAPSULES) [Suspect]
     Indication: DEPRESSION
     Dosage: 100 MG ( 100 MG, 1 IN 1 D), ORAL
     Route: 048
     Dates: start: 20110516, end: 20110528
  2. TEGRETOL [Suspect]
     Indication: PAIN
     Dosage: 100 MG (100 MG, 1 IN 1 D), ORAL
     Route: 048
     Dates: start: 20110526, end: 20110530
  3. TEGRETOL [Suspect]
     Indication: CONDITION AGGRAVATED
     Dosage: 100 MG (100 MG, 1 IN 1 D), ORAL
     Route: 048
     Dates: start: 20110526, end: 20110530
  4. CLONAZEPAM [Suspect]
     Indication: CONDITION AGGRAVATED
     Dosage: 60 DROPS OF 2.5 MG/ML (60 GTT, 1 IN 1 D), ORAL
     Route: 048
     Dates: start: 20110526, end: 20110530
  5. CLONAZEPAM [Suspect]
     Indication: PAIN
     Dosage: 60 DROPS OF 2.5 MG/ML (60 GTT, 1 IN 1 D), ORAL
     Route: 048
     Dates: start: 20110526, end: 20110530

REACTIONS (26)
  - RASH MACULO-PAPULAR [None]
  - STAPHYLOCOCCAL SKIN INFECTION [None]
  - SEPSIS [None]
  - GENERAL PHYSICAL HEALTH DETERIORATION [None]
  - TOXIC SKIN ERUPTION [None]
  - DERMATITIS BULLOUS [None]
  - LIP OEDEMA [None]
  - GAMMA-GLUTAMYLTRANSFERASE INCREASED [None]
  - SYMBLEPHARON [None]
  - DRUG HYPERSENSITIVITY [None]
  - PURPURA [None]
  - BODY TEMPERATURE INCREASED [None]
  - PUNCTATE KERATITIS [None]
  - PAIN [None]
  - CHEILITIS [None]
  - LYMPHADENOPATHY [None]
  - RASH PUSTULAR [None]
  - CONJUNCTIVITIS [None]
  - SKIN BURNING SENSATION [None]
  - SKIN EXFOLIATION [None]
  - ASPARTATE AMINOTRANSFERASE INCREASED [None]
  - ALANINE AMINOTRANSFERASE INCREASED [None]
  - EYELID OEDEMA [None]
  - RASH GENERALISED [None]
  - RASH PRURITIC [None]
  - ASTHENIA [None]
